FAERS Safety Report 11623494 (Version 1)
Quarter: 2015Q4

REPORT INFORMATION
  Report Type: Spontaneous
  Country: US (occurrence: US)
  Receive Date: 20151013
  Receipt Date: 20151013
  Transmission Date: 20160304
  Serious: No
  Sender: FDA-Public Use
  Company Number: US-JNJFOC-20150206569

PATIENT
  Age: 63 Year
  Sex: Female

DRUGS (2)
  1. OTHER THERAPEUTIC MEDICATION [Concomitant]
     Active Substance: UNSPECIFIED INGREDIENT
     Indication: PRODUCT USED FOR UNKNOWN INDICATION
     Route: 065
  2. TYLENOL REGULAR STRENGTH [Suspect]
     Active Substance: ACETAMINOPHEN
     Indication: HEADACHE
     Dosage: ONCE
     Route: 048
     Dates: start: 20150205

REACTIONS (3)
  - Drug ineffective [Unknown]
  - Weight decreased [Unknown]
  - Depression [Unknown]
